FAERS Safety Report 18969447 (Version 1)
Quarter: 2021Q1

REPORT INFORMATION
  Report Type: Spontaneous
  Country: US (occurrence: US)
  Receive Date: 20210304
  Receipt Date: 20210304
  Transmission Date: 20210420
  Serious: No
  Sender: FDA-Public Use
  Company Number: US-AMRYT PHARMACEUTICALS DAC-AEGR004974

PATIENT
  Sex: Female
  Weight: 14.51 kg

DRUGS (4)
  1. MYALEPT [Suspect]
     Active Substance: METRELEPTIN
     Indication: LIPODYSTROPHY ACQUIRED
     Dosage: 0.8 MG, QD
     Route: 058
  2. OMEGA 3                            /01334101/ [Concomitant]
     Active Substance: OMEGA-3 FATTY ACIDS
     Indication: PRODUCT USED FOR UNKNOWN INDICATION
  3. VITAMIN D3 [Concomitant]
     Active Substance: CHOLECALCIFEROL
     Indication: PRODUCT USED FOR UNKNOWN INDICATION
  4. BACTERIOSTATIC WATER [Concomitant]
     Active Substance: WATER
     Indication: PRODUCT USED FOR UNKNOWN INDICATION

REACTIONS (1)
  - Product dose omission issue [Unknown]
